FAERS Safety Report 25321690 (Version 2)
Quarter: 2025Q3

REPORT INFORMATION
  Report Type: Spontaneous
  Country: US (occurrence: US)
  Receive Date: 20250516
  Receipt Date: 20250714
  Transmission Date: 20251021
  Serious: No
  Sender: STALLERGENES
  Company Number: US-STALCOR-2025-AER-00939

PATIENT
  Age: 10 Year
  Sex: Female

DRUGS (3)
  1. PALFORZIA [Suspect]
     Active Substance: PEANUT
     Indication: Food allergy
     Dosage: IDE KIT (0.5-6MG)- DISPENSED ON 04-MAR-2025. ?REPORTED AES OCCURRED AT INCREMENT OF 1MG DOSE ON 11-M
     Route: 048
     Dates: start: 20250311
  2. PALFORZIA [Suspect]
     Active Substance: PEANUT
     Dosage: 2MG DOSE (OFF LABEL) WAS TOLERATED AT PRESCRIBER^S OFFICE ON 06-MAY-2025.
     Route: 048
     Dates: start: 20250506
  3. EPINEPHRINE [Concomitant]
     Active Substance: EPINEPHRINE
     Indication: Prophylaxis

REACTIONS (6)
  - Rash [Recovered/Resolved]
  - Influenza [Recovered/Resolved]
  - Abdominal pain [Recovering/Resolving]
  - Nausea [Recovering/Resolving]
  - Off label use [Not Recovered/Not Resolved]
  - Therapy interrupted [Recovered/Resolved]

NARRATIVE: CASE EVENT DATE: 20250311
